APPROVED DRUG PRODUCT: CIPROFLOXACIN HYDROCHLORIDE
Active Ingredient: CIPROFLOXACIN HYDROCHLORIDE
Strength: EQ 250MG BASE
Dosage Form/Route: TABLET;ORAL
Application: A077859 | Product #001 | TE Code: AB
Applicant: AUROBINDO PHARMA LTD
Approved: Apr 26, 2007 | RLD: No | RS: No | Type: RX